FAERS Safety Report 5846961-5 (Version None)
Quarter: 2008Q3

REPORT INFORMATION
  Report Type: 
  Country: None (occurrence: None)
  Receive Date: 20080815
  Receipt Date: 20080807
  Transmission Date: 20090109
  Serious: Yes (Other)
  Sender: FDA-Public Use
  Company Number: NO-PFIZER INC-2008065761

PATIENT
  Sex: Male

DRUGS (4)
  1. CELEBRA [Suspect]
     Indication: POLYARTHRITIS
     Route: 048
     Dates: start: 20030610, end: 20051012
  2. CELESTONE [Concomitant]
  3. DEPO-MEDROL [Concomitant]
     Route: 048
  4. PREDNISOLONE [Concomitant]

REACTIONS (5)
  - APHASIA [None]
  - APRAXIA [None]
  - CEREBRAL INFARCTION [None]
  - HAEMORRHAGIC TRANSFORMATION STROKE [None]
  - HEMIPARESIS [None]
